FAERS Safety Report 5444542-9 (Version None)
Quarter: 2007Q3

REPORT INFORMATION
  Report Type: 
  Country: None (occurrence: None)
  Receive Date: 20070904
  Receipt Date: 20070904
  Transmission Date: 20080115
  Serious: Yes (Hospitalization)
  Sender: FDA-Public Use
  Company Number: None

PATIENT
  Sex: Female
  Weight: 79.4 kg

DRUGS (9)
  1. GEMCITABINE HCL [Suspect]
     Indication: PANCREATIC DISORDER
     Dosage: 2000 MG  D1, 8 FOR 21 DAY   IV
     Route: 042
     Dates: start: 20070828, end: 20070828
  2. CAPCITABINE [Suspect]
     Indication: PANCREATIC DISORDER
     Dosage: 1000 MG  1-14 BID   PO
     Route: 048
     Dates: start: 20070828, end: 20070830
  3. MORPHINE SULFATE [Concomitant]
  4. BISACODYL [Concomitant]
  5. MIRLAX [Concomitant]
  6. VICODIN [Concomitant]
  7. ORTHO-NOVUM [Concomitant]
  8. IBUPROFEN [Concomitant]
  9. LORAZEPAM [Concomitant]

REACTIONS (1)
  - ABDOMINAL PAIN [None]
